FAERS Safety Report 4634142-2 (Version None)
Quarter: 2005Q2

REPORT INFORMATION
  Report Type: 
  Country: None (occurrence: None)
  Receive Date: 20050413
  Receipt Date: 20041105
  Transmission Date: 20051028
  Serious: Yes (Hospitalization)
  Sender: FDA-Public Use
  Company Number: DE-MERCK-0411DEU00116

PATIENT
  Age: 72 Year
  Sex: Male
  Weight: 91 kg

DRUGS (5)
  1. VIOXX [Suspect]
     Route: 048
     Dates: start: 20000101, end: 20031101
  2. ASPIRIN [Concomitant]
     Route: 048
  3. GLYBURIDE [Concomitant]
     Route: 048
  4. MAGNESIUM ASPARTATE AND MAGNESIUM CITRATE AND MAGNESIUM GLUTAMATE AND [Concomitant]
     Route: 065
  5. GLYBURIDE [Concomitant]
     Indication: DIABETES MELLITUS
     Route: 065

REACTIONS (10)
  - ANGINA PECTORIS [None]
  - ARRHYTHMIA [None]
  - ARTERIAL RESTENOSIS [None]
  - CARDIAC FAILURE [None]
  - CAROTID ARTERY STENOSIS [None]
  - DEMYELINATION [None]
  - DIZZINESS [None]
  - NERVOUS SYSTEM DISORDER [None]
  - SYNCOPE [None]
  - TRANSIENT ISCHAEMIC ATTACK [None]
